FAERS Safety Report 16754036 (Version 1)
Quarter: 2019Q4

REPORT INFORMATION
  Report Type: Spontaneous
  Country: US (occurrence: US)
  Receive Date: 20190828
  Receipt Date: 20190828
  Transmission Date: 20200122
  Serious: Yes (Other)
  Sender: FDA-Public Use
  Company Number: None

PATIENT
  Age: 42 Year
  Sex: Female
  Weight: 81 kg

DRUGS (1)
  1. ALINIA [Suspect]
     Active Substance: NITAZOXANIDE
     Indication: INFECTION PARASITIC
     Route: 048
     Dates: start: 20190821, end: 20190822

REACTIONS (3)
  - Pallor [None]
  - Rash erythematous [None]
  - Skin burning sensation [None]

NARRATIVE: CASE EVENT DATE: 20190822
